FAERS Safety Report 11634402 (Version 1)
Quarter: 2015Q4

REPORT INFORMATION
  Report Type: Spontaneous
  Country: CH (occurrence: CH)
  Receive Date: 20151015
  Receipt Date: 20151015
  Transmission Date: 20160304
  Serious: Yes (Hospitalization, Other)
  Sender: FDA-Public Use
  Company Number: CH-JNJFOC-20151004705

PATIENT
  Age: 86 Year
  Sex: Female

DRUGS (16)
  1. DUROGESIC [Suspect]
     Active Substance: FENTANYL
     Indication: PAIN IN EXTREMITY
     Route: 062
     Dates: start: 20150615, end: 20150719
  2. DAFALGAN [Concomitant]
     Active Substance: ACETAMINOPHEN
     Indication: PRODUCT USED FOR UNKNOWN INDICATION
     Route: 048
     Dates: start: 20150422
  3. LIDOCAINE. [Concomitant]
     Active Substance: LIDOCAINE
     Indication: PRODUCT USED FOR UNKNOWN INDICATION
     Route: 061
     Dates: start: 20150501
  4. TRITTICO [Concomitant]
     Active Substance: TRAZODONE HYDROCHLORIDE
     Indication: PRODUCT USED FOR UNKNOWN INDICATION
     Route: 048
     Dates: end: 20150511
  5. DUROGESIC [Suspect]
     Active Substance: FENTANYL
     Indication: PAIN IN EXTREMITY
     Route: 062
     Dates: start: 20150506
  6. NEXIUM [Concomitant]
     Active Substance: ESOMEPRAZOLE MAGNESIUM
     Indication: PRODUCT USED FOR UNKNOWN INDICATION
     Route: 048
     Dates: start: 20150407
  7. IPRAMOL [Concomitant]
     Active Substance: ALBUTEROL SULFATE\IPRATROPIUM BROMIDE
     Indication: PRODUCT USED FOR UNKNOWN INDICATION
     Route: 055
     Dates: start: 20150508
  8. VITAMIN B12 [Concomitant]
     Active Substance: CYANOCOBALAMIN
     Indication: PRODUCT USED FOR UNKNOWN INDICATION
     Route: 048
     Dates: start: 20150518
  9. SAROTEN [Suspect]
     Active Substance: AMITRIPTYLINE
     Indication: NEURALGIA
     Route: 048
     Dates: start: 20150501
  10. CONCOR [Concomitant]
     Active Substance: BISOPROLOL FUMARATE
     Indication: PRODUCT USED FOR UNKNOWN INDICATION
     Route: 048
  11. CYMBALTA [Concomitant]
     Active Substance: DULOXETINE HYDROCHLORIDE
     Indication: PRODUCT USED FOR UNKNOWN INDICATION
     Route: 048
     Dates: end: 20150515
  12. DUROGESIC [Suspect]
     Active Substance: FENTANYL
     Indication: PAIN IN EXTREMITY
     Route: 062
     Dates: start: 20150508, end: 20150614
  13. CLEXANE [Concomitant]
     Active Substance: ENOXAPARIN SODIUM
     Indication: PRODUCT USED FOR UNKNOWN INDICATION
     Route: 058
     Dates: start: 20150526
  14. LYRICA [Concomitant]
     Active Substance: PREGABALIN
     Indication: PRODUCT USED FOR UNKNOWN INDICATION
     Route: 048
  15. DUROGESIC [Suspect]
     Active Substance: FENTANYL
     Indication: PAIN IN EXTREMITY
     Route: 062
     Dates: start: 20150720, end: 20150721
  16. LAXOBERON [Concomitant]
     Active Substance: SODIUM PICOSULFATE
     Indication: PRODUCT USED FOR UNKNOWN INDICATION
     Route: 048
     Dates: start: 20150407

REACTIONS (7)
  - Pyrexia [Recovered/Resolved]
  - Muscular weakness [Unknown]
  - Altered state of consciousness [Recovered/Resolved]
  - Toxicity to various agents [Unknown]
  - Acute kidney injury [Unknown]
  - Tremor [Recovered/Resolved]
  - Cardiac failure [Unknown]

NARRATIVE: CASE EVENT DATE: 20150721
